FAERS Safety Report 9606107 (Version 2)
Quarter: 2013Q4

REPORT INFORMATION
  Report Type: Spontaneous
  Country: US (occurrence: US)
  Receive Date: 20131008
  Receipt Date: 20131008
  Transmission Date: 20140711
  Serious: No
  Sender: FDA-Public Use
  Company Number: US-AMGEN-USASP2013041757

PATIENT
  Age: 73 Year
  Sex: Female
  Weight: 68 kg

DRUGS (6)
  1. PROLIA [Suspect]
     Indication: OSTEOPOROSIS POSTMENOPAUSAL
     Dosage: UNK
     Dates: start: 20130531
  2. NEURONTIN [Concomitant]
     Dosage: 1200 MG, QD
     Route: 048
  3. METOPROLOL [Concomitant]
     Dosage: 50 MG, QD
     Route: 048
  4. CITRACAL                           /00751520/ [Concomitant]
     Dosage: 400 MG, QD
     Route: 048
  5. ZOLPIDEM [Concomitant]
     Dosage: 5 MG, QD
     Route: 048
  6. CLINDAMYCIN [Concomitant]
     Dosage: UNK UNK, QD
     Route: 061

REACTIONS (4)
  - Abdominal pain [Recovering/Resolving]
  - Back pain [Recovering/Resolving]
  - Arthralgia [Recovering/Resolving]
  - Pain in extremity [Recovering/Resolving]
